FAERS Safety Report 7385220-9 (Version None)
Quarter: 2011Q1

REPORT INFORMATION
  Report Type: 
  Country: None (occurrence: None)
  Receive Date: 20110330
  Receipt Date: 20110329
  Transmission Date: 20110831
  Serious: Yes (Hospitalization, Other)
  Sender: FDA-Public Use
  Company Number: JP-ABBOTT-10P-087-0667963-00

PATIENT
  Sex: Female
  Weight: 54 kg

DRUGS (22)
  1. METHOTREXATE [Suspect]
     Indication: RHEUMATOID ARTHRITIS
     Dosage: 4 MG, PER WEEK
  2. PREDNISOLONE [Suspect]
     Route: 048
     Dates: end: 20100220
  3. FOLIC ACID [Concomitant]
     Indication: ADVERSE DRUG REACTION
  4. ROSUVASTATIN CALCIUM [Concomitant]
     Indication: DYSLIPIDAEMIA
  5. FAMOTIDINE [Concomitant]
     Indication: PROPHYLAXIS
  6. FAMOTIDINE [Concomitant]
     Indication: GASTROINTESTINAL DISORDER
  7. ROSUVASTATIN CALCIUM [Concomitant]
     Indication: PROPHYLAXIS
  8. SULFAMETHOXAZOLE W/TRIMETHOPRIM [Suspect]
     Dosage: DESENSITIZATION AND PROPHYLACTIC ADMINISTRATION
     Dates: start: 20101014
  9. PYRIDOXAL PHOSPHATE HYDRATE [Concomitant]
     Indication: PRODUCT USED FOR UNKNOWN INDICATION
  10. MECOBALAMIN [Concomitant]
     Indication: HYPOAESTHESIA
  11. ISONIAZID [Concomitant]
     Indication: ANTIBIOTIC PROPHYLAXIS
  12. HUMIRA [Suspect]
     Indication: RHEUMATOID ARTHRITIS
     Route: 058
     Dates: start: 20090825, end: 20100810
  13. METHOTREXATE [Suspect]
     Dosage: 6 MG/W
     Dates: end: 20100810
  14. METHOTREXATE [Suspect]
     Dosage: 4MG/WK
     Dates: start: 20101014
  15. AMLODIPINE BESILATE [Concomitant]
     Indication: PRODUCT USED FOR UNKNOWN INDICATION
     Dosage: 5 MG, DAILY
  16. FOLIC ACID [Concomitant]
     Indication: PROPHYLAXIS
  17. INDOMETHACIN SODIUM [Concomitant]
     Indication: RHEUMATOID ARTHRITIS
  18. ALENDRONATE SODIUM [Concomitant]
     Indication: OSTEOPOROSIS PROPHYLAXIS
     Dosage: 35 MG, PER WEEK
  19. SULFAMETHOXAZOLE W/TRIMETHOPRIM [Suspect]
     Indication: PRODUCT USED FOR UNKNOWN INDICATION
     Dosage: 6 TABS
  20. PENTAMIDINE ISETHIONATE [Suspect]
     Dosage: 300 MG/36H DIV
     Dates: start: 20100906, end: 20100923
  21. PREDNISOLONE [Suspect]
     Indication: RHEUMATOID ARTHRITIS
     Dosage: 1 MG, DAILY
     Route: 048
     Dates: start: 20100227
  22. MECOBALAMIN [Concomitant]
     Indication: PROPHYLAXIS

REACTIONS (11)
  - ANAL FISSURE [None]
  - CYTOMEGALOVIRUS INFECTION [None]
  - ANAEMIA [None]
  - ORAL CANDIDIASIS [None]
  - INFLAMMATION [None]
  - ORAL HERPES [None]
  - DYSPNOEA [None]
  - PNEUMOCYSTIS JIROVECI PNEUMONIA [None]
  - DYSPNOEA EXERTIONAL [None]
  - PYREXIA [None]
  - IMMUNOSUPPRESSION [None]
